FAERS Safety Report 5508632-4 (Version None)
Quarter: 2007Q4

REPORT INFORMATION
  Report Type: 
  Country: None (occurrence: None)
  Receive Date: 20071107
  Receipt Date: 20071101
  Transmission Date: 20080405
  Serious: Yes (Other)
  Sender: FDA-Public Use
  Company Number: GB-BAYER-200711142BNE

PATIENT
  Age: 79 Year
  Sex: Female
  Weight: 51 kg

DRUGS (13)
  1. CIPROFLOXACIN [Suspect]
     Indication: LOWER RESPIRATORY TRACT INFECTION
     Route: 048
     Dates: start: 20070828, end: 20070905
  2. ASPIRIN [Concomitant]
     Dosage: TOTAL DAILY DOSE: 150 MG
  3. BECLOMETHASONE DIPROPIONATE [Concomitant]
  4. CODEINE SUL TAB [Concomitant]
     Dosage: TOTAL DAILY DOSE: 60 MG
  5. LEVOTHYROXINE SODIUM [Concomitant]
     Dosage: TOTAL DAILY DOSE: 100 MG
  6. PARACETAMOL [Concomitant]
     Dosage: TOTAL DAILY DOSE: 4 G
  7. PROPAFENONE HUDROCHLORIDE [Concomitant]
     Dosage: TOTAL DAILY DOSE: 450 MG
  8. RISEDRONATE SODIUM [Concomitant]
  9. SERTRALINE HYDROCHLORIDE [Concomitant]
     Dosage: TOTAL DAILY DOSE: 100 MG
  10. TIOTROPIUM BROMIDE [Concomitant]
     Dosage: TOTAL DAILY DOSE: 18 ?G
  11. VENTOLIN [Concomitant]
     Dosage: TOTAL DAILY DOSE: 800 ?G
  12. ZOPICLONE [Concomitant]
     Dosage: TOTAL DAILY DOSE: 7.50 MG
  13. COZACHEW MELTDOWN [Concomitant]

REACTIONS (1)
  - BRONCHIECTASIS [None]
